FAERS Safety Report 13084698 (Version 11)
Quarter: 2018Q1

REPORT INFORMATION
  Report Type: Spontaneous
  Country: GB (occurrence: GB)
  Receive Date: 20170104
  Receipt Date: 20180329
  Transmission Date: 20180508
  Serious: Yes (Other)
  Sender: FDA-Public Use
  Company Number: GB-MYLANLABS-2016M1058967

PATIENT
  Age: 47 Year
  Sex: Female

DRUGS (4)
  1. CLOZARIL [Suspect]
     Active Substance: CLOZAPINE
     Dosage: UNK
     Route: 048
     Dates: start: 20170212, end: 20170328
  2. CLOZARIL [Suspect]
     Active Substance: CLOZAPINE
     Dosage: UNK
     Dates: start: 201703
  3. CLOZARIL [Suspect]
     Active Substance: CLOZAPINE
     Indication: SCHIZOPHRENIA
     Dosage: UNK
     Route: 048
     Dates: start: 20000419, end: 201612
  4. CLOZARIL [Suspect]
     Active Substance: CLOZAPINE
     Dosage: UNK
     Route: 048
     Dates: start: 20170213

REACTIONS (11)
  - Differential white blood cell count abnormal [Unknown]
  - Malaise [Recovered/Resolved]
  - Neutrophil count decreased [Not Recovered/Not Resolved]
  - Adenocarcinoma [Unknown]
  - Mental impairment [Not Recovered/Not Resolved]
  - White blood cell count increased [Recovered/Resolved]
  - Haemoglobin decreased [Recovered/Resolved]
  - Metastatic neoplasm [Unknown]
  - White blood cell count decreased [Recovered/Resolved]
  - Neutrophil count increased [Recovering/Resolving]
  - Infection [Unknown]

NARRATIVE: CASE EVENT DATE: 201609
